FAERS Safety Report 9532098 (Version 1)
Quarter: 2013Q1

REPORT INFORMATION
  Report Type: Spontaneous
  Country: US (occurrence: None)
  Receive Date: 20130329
  Receipt Date: 20130329
  Transmission Date: 20140127
  Serious: No
  Sender: FDA-Public Use
  Company Number: 1000041955

PATIENT
  Age: 78 Year
  Sex: Male

DRUGS (4)
  1. LINZESS (LINACLOTIDE)(145 MICROGRAM, CAPSULES) [Suspect]
     Indication: DIVERTICULITIS
     Route: 048
     Dates: start: 20130121
  2. ATENOLOL (ATENOLOL)(ATENOLOL) [Concomitant]
  3. AVODART (DUTASTERIDE)(DUTASTERIDE) [Concomitant]
  4. BABY ASPIRIN (ACETYLSALICYLIC ACID)(81 MILLIGRAM) (ACETYLSALICYLIC ACID) [Concomitant]

REACTIONS (2)
  - Diarrhoea [None]
  - Off label use [None]
